FAERS Safety Report 21888363 (Version 1)
Quarter: 2023Q1

REPORT INFORMATION
  Report Type: Spontaneous
  Country: US (occurrence: None)
  Receive Date: 20230120
  Receipt Date: 20230120
  Transmission Date: 20230418
  Serious: Yes (Hospitalization)
  Sender: FDA-Public Use
  Company Number: 2023A008614

PATIENT
  Age: 27678 Day
  Sex: Male
  Weight: 66.7 kg

DRUGS (1)
  1. LOKELMA [Suspect]
     Active Substance: SODIUM ZIRCONIUM CYCLOSILICATE
     Indication: Blood potassium increased
     Route: 048

REACTIONS (4)
  - Nocardiosis [Recovering/Resolving]
  - Blood potassium increased [Not Recovered/Not Resolved]
  - Bacterial infection [Recovering/Resolving]
  - Hernia [Recovered/Resolved]

NARRATIVE: CASE EVENT DATE: 20220901
